FAERS Safety Report 13062826 (Version 2)
Quarter: 2017Q1

REPORT INFORMATION
  Report Type: Report from Study
  Country: ES (occurrence: ES)
  Receive Date: 20161226
  Receipt Date: 20170208
  Transmission Date: 20170428
  Serious: Yes (Death, Hospitalization)
  Sender: FDA-Public Use
  Company Number: PHHY2016ES177275

PATIENT
  Age: 68 Year
  Sex: Male
  Weight: 53 kg

DRUGS (1)
  1. LDK378 [Suspect]
     Active Substance: CERITINIB
     Indication: LUNG NEOPLASM MALIGNANT
     Dosage: UNK
     Route: 048
     Dates: start: 20161111, end: 20161130

REACTIONS (7)
  - Lung neoplasm malignant [Fatal]
  - Weight decreased [Unknown]
  - Diarrhoea [Recovered/Resolved]
  - Dyspnoea [Unknown]
  - Abdominal pain [Recovered/Resolved]
  - General physical health deterioration [Unknown]
  - Malignant neoplasm progression [Fatal]

NARRATIVE: CASE EVENT DATE: 20161130
